FAERS Safety Report 8395744 (Version 2)
Quarter: 2012Q4

REPORT INFORMATION
  Report Type: 
  Country: US (occurrence: US)
  Receive Date: 20120208
  Receipt Date: 20120914
  Transmission Date: 20130627
  Serious: Yes (Hospitalization)
  Sender: FDA-Public Use
  Company Number: US-BAYER-2012-009740

PATIENT
  Age: 25 Year
  Sex: Female
  Weight: 83.9 kg

DRUGS (1)
  1. YASMIN [Suspect]
     Indication: CONTRACEPTION
     Dosage: UNK
     Dates: start: 2007, end: 2009

REACTIONS (3)
  - Pulmonary embolism [None]
  - Pain [None]
  - Anxiety [None]
